FAERS Safety Report 25189332 (Version 2)
Quarter: 2025Q2

REPORT INFORMATION
  Report Type: Report from Study
  Country: US (occurrence: US)
  Receive Date: 20250411
  Receipt Date: 20250516
  Transmission Date: 20250716
  Serious: Yes (Other)
  Sender: SUNOVION
  Company Number: US-SMPA-2025SPA004163

PATIENT

DRUGS (3)
  1. ORGOVYX [Suspect]
     Active Substance: RELUGOLIX
     Indication: Prostate cancer
     Route: 048
  2. ORGOVYX [Suspect]
     Active Substance: RELUGOLIX
     Dosage: 120 MG, QD
     Route: 048
     Dates: start: 20240214
  3. ABIRATERONE [Suspect]
     Active Substance: ABIRATERONE
     Route: 065

REACTIONS (11)
  - Choking [Unknown]
  - Emotional disorder [Unknown]
  - Disturbance in attention [Unknown]
  - Motor dysfunction [Unknown]
  - Weight decreased [Unknown]
  - Decreased appetite [Unknown]
  - Dry mouth [Unknown]
  - Fall [Unknown]
  - Headache [Unknown]
  - Asthenia [Recovering/Resolving]
  - Fatigue [Recovering/Resolving]
